FAERS Safety Report 11260882 (Version 1)
Quarter: 2015Q3

REPORT INFORMATION
  Report Type: Spontaneous
  Country: US (occurrence: US)
  Receive Date: 20150710
  Receipt Date: 20150710
  Transmission Date: 20151125
  Serious: Yes (Hospitalization, Other)
  Sender: FDA-Public Use
  Company Number: US-GLAXOSMITHKLINE-US2015GSK098482

PATIENT
  Age: 80 Year
  Sex: Male
  Weight: 63.49 kg

DRUGS (8)
  1. MEKINIST [Suspect]
     Active Substance: TRAMETINIB DIMETHYL SULFOXIDE
     Indication: MALIGNANT MELANOMA
     Dosage: 2 MG, QD
     Route: 048
     Dates: start: 201503
  2. TAFINLAR [Suspect]
     Active Substance: DABRAFENIB MESYLATE
     Indication: MALIGNANT MELANOMA
  3. CALCIUM [Concomitant]
     Active Substance: CALCIUM
  4. BABY ASA [Concomitant]
     Active Substance: ASPIRIN
  5. VITAMIN C [Concomitant]
     Active Substance: ASCORBIC ACID
  6. TAFINLAR [Suspect]
     Active Substance: DABRAFENIB MESYLATE
     Indication: HEPATIC CANCER
     Dosage: 75 MG, BID
     Route: 048
     Dates: start: 201503
  7. MEKINIST [Suspect]
     Active Substance: TRAMETINIB DIMETHYL SULFOXIDE
     Indication: HEPATIC CANCER
  8. VANCOMYCIN [Suspect]
     Active Substance: VANCOMYCIN
     Indication: PRODUCT USED FOR UNKNOWN INDICATION
     Route: 042

REACTIONS (13)
  - Polyuria [Unknown]
  - Overdose [Unknown]
  - Rash macular [Unknown]
  - Asthenia [Unknown]
  - Confusional state [Unknown]
  - Adverse drug reaction [Unknown]
  - Walking aid user [Unknown]
  - Head injury [Unknown]
  - Colitis [Unknown]
  - Fall [Unknown]
  - Drug hypersensitivity [Unknown]
  - Clostridium difficile infection [Unknown]
  - Brain oedema [Unknown]

NARRATIVE: CASE EVENT DATE: 201505
